FAERS Safety Report 5630561-6 (Version None)
Quarter: 2008Q1

REPORT INFORMATION
  Report Type: 
  Country: None (occurrence: None)
  Receive Date: 20080219
  Receipt Date: 20080214
  Transmission Date: 20080703
  Serious: Yes (Other)
  Sender: FDA-Public Use
  Company Number: A0695725A

PATIENT
  Sex: Female

DRUGS (2)
  1. LAMICTAL [Suspect]
     Indication: DRUG USE FOR UNKNOWN INDICATION
     Route: 048
  2. AMBIEN [Suspect]

REACTIONS (6)
  - ALTERED STATE OF CONSCIOUSNESS [None]
  - DIPLOPIA [None]
  - NAUSEA [None]
  - RESPIRATORY DISTRESS [None]
  - VERTIGO [None]
  - VOMITING [None]
